FAERS Safety Report 22255867 (Version 1)
Quarter: 2023Q2

REPORT INFORMATION
  Report Type: Spontaneous
  Country: US (occurrence: None)
  Receive Date: 20230426
  Receipt Date: 20230426
  Transmission Date: 20230721
  Serious: Yes (Life-Threatening, Hospitalization)
  Sender: FDA-Public Use
  Company Number: None

PATIENT
  Age: 62 Year
  Sex: Female
  Weight: 52.7 kg

DRUGS (17)
  1. LOVENOX [Suspect]
     Active Substance: ENOXAPARIN SODIUM
     Indication: Pulmonary embolism
     Dosage: FREQUENCY : TWICE A DAY;?
     Route: 058
     Dates: start: 20230214, end: 20230218
  2. ACETAMINOPHEN [Concomitant]
     Active Substance: ACETAMINOPHEN
     Dates: start: 20230215, end: 20230218
  3. ATORVASTATIN [Concomitant]
     Active Substance: ATORVASTATIN
     Dates: start: 20230214, end: 20230218
  4. PULMICORT RESPULES [Concomitant]
     Active Substance: BUDESONIDE
     Dates: start: 20230214, end: 20230218
  5. BUSPIRONE [Concomitant]
     Active Substance: BUSPIRONE HYDROCHLORIDE
     Dates: start: 20230214, end: 20230218
  6. DIGOXIN [Concomitant]
     Active Substance: DIGOXIN
     Dates: start: 20230214, end: 20230218
  7. ESCITALOPRAM [Concomitant]
     Active Substance: ESCITALOPRAM OXALATE
     Dates: start: 20230214, end: 20230218
  8. Formoterol Nebulizer [Concomitant]
     Dates: start: 20230214, end: 20230218
  9. FUROSEMIDE [Concomitant]
     Active Substance: FUROSEMIDE
     Dates: start: 20230214, end: 20230218
  10. ipratopium-albuterol nebulizer [Concomitant]
     Dates: start: 20230214, end: 20230214
  11. NINTEDANIB ESYLATE [Concomitant]
     Active Substance: NINTEDANIB ESYLATE
     Dates: start: 20230214, end: 20230218
  12. PANTOPRAZOLE [Concomitant]
     Active Substance: PANTOPRAZOLE
     Dates: start: 20230214, end: 20230218
  13. PENICILLIN V POTASSIUM [Concomitant]
     Active Substance: PENICILLIN V POTASSIUM
     Dates: start: 20230217, end: 20230218
  14. PHENOL [Concomitant]
     Active Substance: PHENOL
     Dates: start: 20230215, end: 20230216
  15. PREDNISONE [Concomitant]
     Active Substance: PREDNISONE
     Dates: start: 20230214, end: 20230218
  16. PSYLLIUM [Concomitant]
     Active Substance: PLANTAGO SEED
     Dates: start: 20230214, end: 20230218
  17. VITAMIN D3 [Concomitant]
     Active Substance: CHOLECALCIFEROL
     Dates: start: 20230214, end: 20230218

REACTIONS (6)
  - Abdominal wall haematoma [None]
  - Bladder disorder [None]
  - Gastrointestinal disorder [None]
  - Dysuria [None]
  - Tachycardia [None]
  - Blood pressure decreased [None]

NARRATIVE: CASE EVENT DATE: 20230217
